FAERS Safety Report 4364279-7 (Version None)
Quarter: 2004Q2

REPORT INFORMATION
  Report Type: 
  Country: None (occurrence: None)
  Receive Date: 20040519
  Receipt Date: 20040510
  Transmission Date: 20050107
  Serious: Yes (Hospitalization)
  Sender: FDA-Public Use
  Company Number: US-SHR-03-016756

PATIENT
  Age: 28 Year
  Sex: Female
  Weight: 81.2 kg

DRUGS (2)
  1. BETASERON (INTERFERON BETA-1B) INJECTION [Suspect]
     Indication: MULTIPLE SCLEROSIS
     Dosage: 2 MIU, EVERY 2 D, SUBCUTANEOUS
     Route: 058
     Dates: start: 20031022
  2. NEURONTIN [Concomitant]

REACTIONS (2)
  - OVARIAN CYST [None]
  - OVARIAN CYST TORSION [None]
